FAERS Safety Report 7306321-7 (Version None)
Quarter: 2011Q1

REPORT INFORMATION
  Report Type: 
  Country: None (occurrence: None)
  Receive Date: 20110222
  Receipt Date: 20110217
  Transmission Date: 20110831
  Serious: Yes (Hospitalization)
  Sender: FDA-Public Use
  Company Number: US-ABBOTT-11P-163-0705998-00

PATIENT
  Sex: Female
  Weight: 79.45 kg

DRUGS (5)
  1. REQUIP [Suspect]
     Indication: PRODUCT USED FOR UNKNOWN INDICATION
  2. STALEVO 100 [Concomitant]
     Indication: PARKINSON'S DISEASE
  3. HUMIRA [Suspect]
     Indication: CROHN'S DISEASE
     Dates: start: 20090101
  4. STALEVO 100 [Concomitant]
     Indication: PROPHYLAXIS
  5. OXYBUTYNIN [Concomitant]
     Indication: CYSTITIS

REACTIONS (4)
  - CYSTITIS [None]
  - ORAL FUNGAL INFECTION [None]
  - CEREBROVASCULAR ACCIDENT [None]
  - INFLUENZA [None]
